FAERS Safety Report 12455483 (Version 1)
Quarter: 2016Q2

REPORT INFORMATION
  Report Type: Spontaneous
  Country: US (occurrence: None)
  Receive Date: 20160609
  Receipt Date: 20160609
  Transmission Date: 20160815
  Serious: No
  Sender: FDA-Public Use
  Company Number: None

PATIENT

DRUGS (2)
  1. VALPROATE SODIUM VALPROATE SODIUM [Suspect]
     Active Substance: VALPROATE SODIUM
     Route: 042
  2. LEVETIRACETAM LEVETIRACETAM [Suspect]
     Active Substance: LEVETIRACETAM
     Route: 042

REACTIONS (1)
  - Product label confusion [None]
